FAERS Safety Report 23988938 (Version 2)
Quarter: 2024Q2

REPORT INFORMATION
  Report Type: Spontaneous
  Country: US (occurrence: US)
  Receive Date: 20240619
  Receipt Date: 20240620
  Transmission Date: 20240716
  Serious: Yes (Hospitalization)
  Sender: FDA-Public Use
  Company Number: US-JNJFOC-20240641482

PATIENT
  Age: 74 Year
  Sex: Male

DRUGS (4)
  1. BUDESONIDE [Suspect]
     Active Substance: BUDESONIDE
     Indication: Chronic obstructive pulmonary disease
     Route: 055
  2. BUDESONIDE\FORMOTEROL\GLYCOPYRRONIUM [Suspect]
     Active Substance: BUDESONIDE\FORMOTEROL\GLYCOPYRRONIUM
     Indication: Chronic obstructive pulmonary disease
     Route: 055
  3. OXYGEN [Concomitant]
     Active Substance: OXYGEN
     Indication: Oxygen therapy
     Dosage: HE INCREASED HIS OXYGEN SUPPLEMENTATION TO THE MAXIMUM OF 6 L
     Route: 045
  4. OXYGEN [Concomitant]
     Active Substance: OXYGEN
     Dosage: 2 L NASAL CANNULA OXYGEN SUPPLEMENTATION AT BASELINE
     Route: 045

REACTIONS (7)
  - Pulmonary hypertension [Recovering/Resolving]
  - Emphysema [Recovering/Resolving]
  - Pneumonia bacterial [Recovering/Resolving]
  - Bacterial sepsis [Recovering/Resolving]
  - Pulmonary fibrosis [Recovering/Resolving]
  - Respiratory failure [Recovering/Resolving]
  - Product use in unapproved indication [Recovering/Resolving]
